FAERS Safety Report 7710708-8 (Version None)
Quarter: 2011Q3

REPORT INFORMATION
  Report Type: 
  Country: None (occurrence: None)
  Receive Date: 20110825
  Receipt Date: 20110819
  Transmission Date: 20111222
  Serious: Yes (Death, Other)
  Sender: FDA-Public Use
  Company Number: PHEH2009US01467

PATIENT
  Sex: Female

DRUGS (1)
  1. ZOMETA [Suspect]
     Indication: NEOPLASM MALIGNANT

REACTIONS (21)
  - OSTEONECROSIS OF JAW [None]
  - WEIGHT DECREASED [None]
  - SPINAL COLUMN STENOSIS [None]
  - EATING DISORDER [None]
  - HYDRONEPHROSIS [None]
  - AORTIC DISORDER [None]
  - NEURODEGENERATIVE DISORDER [None]
  - METASTASES TO SPINE [None]
  - GENERAL PHYSICAL HEALTH DETERIORATION [None]
  - AORTIC ARTERIOSCLEROSIS [None]
  - CARDIOMEGALY [None]
  - ASCITES [None]
  - PULMONARY VASCULAR DISORDER [None]
  - COMPRESSION FRACTURE [None]
  - METASTASES TO BONE [None]
  - PAIN IN JAW [None]
  - PATHOLOGICAL FRACTURE [None]
  - JAW DISORDER [None]
  - BONE DISORDER [None]
  - CHOLELITHIASIS [None]
  - INTERVERTEBRAL DISC SPACE NARROWING [None]
